FAERS Safety Report 9743106 (Version 1)
Quarter: 2013Q4

REPORT INFORMATION
  Report Type: Spontaneous
  Country: US (occurrence: US)
  Receive Date: 20131210
  Receipt Date: 20131210
  Transmission Date: 20140711
  Serious: No
  Sender: FDA-Public Use
  Company Number: US-TEVA-379306USA

PATIENT
  Sex: Female
  Weight: 79.45 kg

DRUGS (1)
  1. PARAGARD 380A [Suspect]
     Route: 015
     Dates: start: 200907

REACTIONS (2)
  - Herpes virus infection [Not Recovered/Not Resolved]
  - Menorrhagia [Not Recovered/Not Resolved]
